FAERS Safety Report 8141795-3 (Version None)
Quarter: 2012Q1

REPORT INFORMATION
  Report Type: 
  Country: None (occurrence: None)
  Receive Date: 20120216
  Receipt Date: 20120213
  Transmission Date: 20120608
  Serious: Yes (Death)
  Sender: FDA-Public Use
  Company Number: DE-B.I. PHARMACEUTICALS,INC./RIDGEFIELD-2012-DE-00450DE

PATIENT
  Sex: Female
  Weight: 56 kg

DRUGS (11)
  1. ALLOPURINOL [Concomitant]
     Dosage: 100 MG
  2. BISOPROLOL FUMARATE [Concomitant]
     Dosage: 2.5 MG
  3. FUROSEMIDE [Concomitant]
     Dosage: 10 MG
  4. PRADAXA [Suspect]
     Dosage: 220 MG
  5. RAMIPRIL [Concomitant]
     Dosage: 2.5/12.5 MG
  6. METOPROLOL TARTRATE AND HYDROCHLOROTHIAZIDE [Concomitant]
     Dosage: 95 MG
  7. FEXOFENADIN [Concomitant]
     Dosage: 360 ML
  8. TORSEMIDE [Concomitant]
     Dosage: 10 MG
  9. KALIUM BRAUNTS [Concomitant]
  10. DIGIMERCK NIUM [Concomitant]
  11. ACTRAPHANE [Concomitant]
     Dosage: 30/70 ACCORDING PLAN

REACTIONS (2)
  - DEATH [None]
  - PRURITUS GENERALISED [None]
